FAERS Safety Report 9432476 (Version 1)
Quarter: 2013Q3

REPORT INFORMATION
  Report Type: Spontaneous
  Country: US (occurrence: None)
  Receive Date: 20130730
  Receipt Date: 20130730
  Transmission Date: 20140515
  Serious: Yes (Other)
  Sender: FDA-Public Use
  Company Number: None

PATIENT
  Age: 52 Year
  Sex: Female

DRUGS (1)
  1. LEVOTHYROXINE [Suspect]
     Route: 048
     Dates: start: 20130612, end: 20130729

REACTIONS (11)
  - Feeling abnormal [None]
  - Headache [None]
  - Weight decreased [None]
  - Heart rate increased [None]
  - Palpitations [None]
  - Diarrhoea [None]
  - Hyperhidrosis [None]
  - Insomnia [None]
  - Disturbance in attention [None]
  - Blood thyroid stimulating hormone decreased [None]
  - Product substitution issue [None]
